FAERS Safety Report 20795428 (Version 1)
Quarter: 2022Q2

REPORT INFORMATION
  Report Type: Report from Study
  Country: EG (occurrence: EG)
  Receive Date: 20220506
  Receipt Date: 20220506
  Transmission Date: 20220721
  Serious: Yes (Other)
  Sender: FDA-Public Use
  Company Number: EG-NOVARTISPH-NVSC2021EG246003

PATIENT
  Age: 60 Year
  Sex: Female

DRUGS (14)
  1. AFINITOR [Suspect]
     Active Substance: EVEROLIMUS
     Indication: Breast cancer metastatic
     Dosage: 10 UNK
     Route: 065
  2. AFINITOR [Suspect]
     Active Substance: EVEROLIMUS
     Indication: Metastases to bone
     Dosage: 5 MG, QD
     Route: 065
  3. AFINITOR [Suspect]
     Active Substance: EVEROLIMUS
     Indication: Metastases to skin
     Dosage: 10 MG, QD
     Route: 065
     Dates: start: 20210303
  4. AFINITOR [Suspect]
     Active Substance: EVEROLIMUS
     Dosage: 5 MG, QD
     Route: 048
     Dates: start: 202106, end: 202108
  5. AFINITOR [Suspect]
     Active Substance: EVEROLIMUS
     Dosage: 10 MG, QD
     Route: 048
     Dates: start: 202109, end: 202110
  6. KISQALI [Suspect]
     Active Substance: RIBOCICLIB
     Indication: Breast cancer metastatic
     Dosage: 200 MG (3 TABLETS PER DAY FOR 3 WEEKS THEN 1 WEEK OFF)
     Route: 048
     Dates: start: 202111
  7. KISQALI [Suspect]
     Active Substance: RIBOCICLIB
     Indication: Metastases to bone
  8. KISQALI [Suspect]
     Active Substance: RIBOCICLIB
     Indication: Metastases to skin
  9. KISQALI [Suspect]
     Active Substance: RIBOCICLIB
     Indication: Metastases to liver
  10. FASLODEX [Concomitant]
     Active Substance: FULVESTRANT
     Indication: Bone cancer
     Dosage: 10 MG, QMO
     Route: 065
     Dates: start: 201911
  11. JANUMET [Concomitant]
     Active Substance: METFORMIN HYDROCHLORIDE\SITAGLIPTIN PHOSPHATE
     Indication: Diabetes mellitus
     Dosage: 50/1000 MG, QD
     Route: 065
     Dates: start: 2019
  12. DICLOFENAC [Concomitant]
     Active Substance: DICLOFENAC
     Indication: Bone pain
     Dosage: UNK
     Route: 065
     Dates: start: 201911
  13. CONVENTIN [Concomitant]
     Indication: Bone pain
     Dosage: UNK
     Route: 065
     Dates: start: 202111
  14. MOUTH WASH [Concomitant]
     Indication: Product used for unknown indication
     Dosage: UNK (LESTRINE)
     Route: 065

REACTIONS (15)
  - Malnutrition [Not Recovered/Not Resolved]
  - Ageusia [Recovered/Resolved]
  - Malignant neoplasm progression [Unknown]
  - Metastases to bone [Unknown]
  - Metastases to skin [Unknown]
  - Metastases to liver [Unknown]
  - Breast cancer metastatic [Unknown]
  - Gingival ulceration [Unknown]
  - Mouth ulceration [Recovering/Resolving]
  - Abdominal pain upper [Unknown]
  - Stomatitis [Unknown]
  - Vomiting [Unknown]
  - Drug ineffective [Unknown]
  - Fatigue [Recovering/Resolving]
  - Dizziness [Recovering/Resolving]

NARRATIVE: CASE EVENT DATE: 20210602
